FAERS Safety Report 8582088-X (Version None)
Quarter: 2012Q3

REPORT INFORMATION
  Report Type: 
  Country: None (occurrence: None)
  Receive Date: 20120727
  Receipt Date: 20120717
  Transmission Date: 20120928
  Serious: Yes (Other)
  Sender: FDA-Public Use
  Company Number: DSA_58579_2012

PATIENT
  Sex: Female

DRUGS (2)
  1. ATENOLOL [Concomitant]
  2. DILTIAZEM [Suspect]
     Indication: ANGINA PECTORIS
     Dosage: (DF)
     Dates: start: 20020101, end: 20120416

REACTIONS (2)
  - WEIGHT INCREASED [None]
  - BREAST ENLARGEMENT [None]
